FAERS Safety Report 8344432-8 (Version None)
Quarter: 2012Q2

REPORT INFORMATION
  Report Type: 
  Country: None (occurrence: None)
  Receive Date: 20120508
  Receipt Date: 20120502
  Transmission Date: 20120825
  Serious: Yes (Hospitalization, Other)
  Sender: FDA-Public Use
  Company Number: US-AMGEN-USASP2012027950

PATIENT
  Age: 77 Year
  Sex: Male

DRUGS (14)
  1. LASIX [Concomitant]
  2. TYLENOL (CAPLET) [Concomitant]
  3. TENEX [Concomitant]
  4. PREDNISONE TAB [Concomitant]
  5. ASPIRIN [Concomitant]
  6. LEVOTHYROXINE SODIUM [Concomitant]
  7. OMEPRAZOLE [Concomitant]
  8. FLOMAX [Concomitant]
  9. PROCRIT [Suspect]
     Indication: ANAEMIA
     Dosage: 20000 IU, Q2WK
     Route: 058
  10. IRON SULFATETHIAMIN COMPOUND TAB [Concomitant]
  11. FISH OIL [Concomitant]
  12. LOSARTAN POTASSIUM [Concomitant]
  13. METOPROLOL TARTRATE [Concomitant]
  14. NIACIN [Concomitant]

REACTIONS (2)
  - HOSPITALISATION [None]
  - APLASIA PURE RED CELL [None]
